FAERS Safety Report 22165791 (Version 1)
Quarter: 2023Q2

REPORT INFORMATION
  Report Type: Report from Study
  Country: US (occurrence: US)
  Receive Date: 20230403
  Receipt Date: 20230403
  Transmission Date: 20230721
  Serious: Yes (Other)
  Sender: FDA-Public Use
  Company Number: US-002147023-NVSC2023US072205

PATIENT
  Sex: Female

DRUGS (18)
  1. TRIAMCINOLONE [Suspect]
     Active Substance: TRIAMCINOLONE
     Indication: Psoriatic arthropathy
     Dosage: 0.1 %, BID
     Route: 061
  2. METFORMIN [Suspect]
     Active Substance: METFORMIN HYDROCHLORIDE
     Indication: Psoriatic arthropathy
     Dosage: 1000 MG, BID
     Route: 048
  3. ALBUTEROL SULFATE [Suspect]
     Active Substance: ALBUTEROL SULFATE
     Indication: Product used for unknown indication
     Dosage: UNK
     Route: 065
  4. OMEPRAZOLE [Suspect]
     Active Substance: OMEPRAZOLE
     Indication: Psoriatic arthropathy
     Dosage: 20 MG, QD
     Route: 048
  5. MONTELUKAST [Suspect]
     Active Substance: MONTELUKAST SODIUM
     Indication: Psoriatic arthropathy
     Dosage: 10 MG, QD
     Route: 048
  6. LORATADINE [Suspect]
     Active Substance: LORATADINE
     Indication: Psoriatic arthropathy
     Dosage: 10 MG
     Route: 048
  7. KETOCONAZOLE [Suspect]
     Active Substance: KETOCONAZOLE
     Indication: Psoriatic arthropathy
     Dosage: UNK
     Route: 065
  8. AMITRIPTYLINE [Suspect]
     Active Substance: AMITRIPTYLINE
     Indication: Psoriatic arthropathy
     Dosage: UNK
     Route: 065
  9. LISINOPRIL [Suspect]
     Active Substance: LISINOPRIL
     Indication: Psoriatic arthropathy
     Dosage: 10 MG, QD
     Route: 048
  10. DESVENLAFAXINE [Suspect]
     Active Substance: DESVENLAFAXINE
     Indication: Psoriatic arthropathy
     Dosage: 50 MG, QD
     Route: 048
  11. SIMVASTATIN [Suspect]
     Active Substance: SIMVASTATIN
     Indication: Psoriatic arthropathy
     Dosage: 20 MG, QD
     Route: 048
  12. AMLODIPINE [Suspect]
     Active Substance: AMLODIPINE BESYLATE
     Indication: Psoriatic arthropathy
     Dosage: 10 MG, QD
     Route: 048
  13. CEPHALEXIN [Suspect]
     Active Substance: CEPHALEXIN
     Indication: Psoriatic arthropathy
     Dosage: 500 MG, QD
     Route: 048
  14. FERROUS SULFATE [Suspect]
     Active Substance: FERROUS SULFATE
     Indication: Psoriatic arthropathy
     Dosage: 325 MG, QD
     Route: 048
  15. BUSPIRONE [Suspect]
     Active Substance: BUSPIRONE HYDROCHLORIDE
     Indication: Psoriatic arthropathy
     Dosage: 5 MG, BID
     Route: 048
  16. VENTOLIN HFA [Suspect]
     Active Substance: ALBUTEROL SULFATE
     Indication: Psoriatic arthropathy
     Dosage: UNK
     Route: 065
  17. METOPROLOL SUCCINATE [Suspect]
     Active Substance: METOPROLOL SUCCINATE
     Indication: Psoriatic arthropathy
     Dosage: 100 MG, QD
     Route: 048
  18. FLUOXETINE [Suspect]
     Active Substance: FLUOXETINE HYDROCHLORIDE
     Indication: Psoriatic arthropathy
     Dosage: UNK
     Route: 065

REACTIONS (7)
  - Cellulitis [Unknown]
  - Arthritis [Unknown]
  - Back pain [Unknown]
  - Erythrodermic psoriasis [Unknown]
  - Rash [Unknown]
  - Obesity [Unknown]
  - Therapeutic product ineffective [Unknown]
